FAERS Safety Report 7884857-8 (Version None)
Quarter: 2011Q4

REPORT INFORMATION
  Report Type: 
  Country: None (occurrence: None)
  Receive Date: 20111102
  Receipt Date: 20111025
  Transmission Date: 20120403
  Serious: Yes (Hospitalization, Other)
  Sender: FDA-Public Use
  Company Number: PHHY2011JM94532

PATIENT
  Sex: Female

DRUGS (2)
  1. ACE INHIBITORS [Concomitant]
  2. DIOVAN HCT [Suspect]
     Dosage: UNK

REACTIONS (2)
  - DIABETES MELLITUS [None]
  - BLOOD GLUCOSE INCREASED [None]
